FAERS Safety Report 5705265-1 (Version None)
Quarter: 2008Q2

REPORT INFORMATION
  Report Type: 
  Country: None (occurrence: None)
  Receive Date: 20080410
  Receipt Date: 20080328
  Transmission Date: 20081010
  Serious: Yes (Life-Threatening, Hospitalization)
  Sender: FDA-Public Use
  Company Number: GXKR2008MX03165

PATIENT
  Age: 19 Year
  Sex: Male

DRUGS (5)
  1. PREDNISOLONE [Suspect]
     Indication: IMMUNE RECONSTITUTION SYNDROME
     Dosage: 20 MG, BID
  2. LAMIVUDINE [Concomitant]
  3. STAVUDINE [Concomitant]
  4. INDINIVIR SULFATE [Concomitant]
  5. RITONAVIR (RITONAVIR) [Concomitant]

REACTIONS (8)
  - CONDITION AGGRAVATED [None]
  - EPISTAXIS [None]
  - EYE HAEMORRHAGE [None]
  - KAPOSI'S SARCOMA AIDS RELATED [None]
  - OTITIS MEDIA BACTERIAL [None]
  - PNEUMONIA STREPTOCOCCAL [None]
  - SKIN LESION [None]
  - THROMBOCYTOPENIA [None]
